FAERS Safety Report 5199003-1 (Version None)
Quarter: 2007Q1

REPORT INFORMATION
  Report Type: 
  Country: None (occurrence: None)
  Receive Date: 20070104
  Receipt Date: 20061228
  Transmission Date: 20070707
  Serious: Yes (Hospitalization, Other)
  Sender: FDA-Public Use
  Company Number: ES-BRISTOL-MYERS SQUIBB COMPANY-13415823

PATIENT
  Age: 73 Year
  Sex: Female

DRUGS (13)
  1. CISPLATIN [Suspect]
     Route: 041
     Dates: start: 20060526, end: 20060526
  2. FLUOROURACIL [Suspect]
     Route: 041
     Dates: start: 20060526, end: 20060526
  3. GRANISETRON  HCL [Concomitant]
     Indication: PROPHYLAXIS
     Route: 041
  4. DEXAMETHASONE [Concomitant]
     Indication: NAUSEA
     Route: 042
  5. OMEPRAZOLE [Concomitant]
     Indication: PROPHYLAXIS
     Route: 048
     Dates: start: 20060509
  6. ZOFRAN [Concomitant]
     Indication: PROPHYLAXIS
     Route: 048
  7. ZOFRAN [Concomitant]
     Route: 048
  8. ZOLPIDEM TARTRATE [Concomitant]
     Route: 048
     Dates: start: 20060525
  9. FORTASEC [Concomitant]
     Indication: PROPHYLAXIS
     Route: 048
     Dates: start: 20060527, end: 20060529
  10. ORFIDAL [Concomitant]
     Indication: PROPHYLAXIS
     Route: 048
     Dates: start: 20060526, end: 20060526
  11. PREDNISONE TAB [Concomitant]
     Indication: NAUSEA
     Route: 048
  12. LARGACTIL [Concomitant]
     Indication: NAUSEA
     Route: 048
     Dates: start: 20060531
  13. EPREX [Concomitant]
     Indication: ANAEMIA
     Dates: start: 20060602

REACTIONS (3)
  - MUCOSAL INFLAMMATION [None]
  - NEUTROPENIA [None]
  - VAGINAL INFECTION [None]
